FAERS Safety Report 8128589-X (Version None)
Quarter: 2012Q1

REPORT INFORMATION
  Report Type: 
  Country: None (occurrence: None)
  Receive Date: 20120210
  Receipt Date: 20111212
  Transmission Date: 20120608
  Serious: No
  Sender: FDA-Public Use
  Company Number: US-BRISTOL-MYERS SQUIBB COMPANY-16285439

PATIENT
  Sex: Female

DRUGS (1)
  1. ORENCIA [Suspect]
     Dosage: DURATN OF THERAPY:6/7 MNTHS NO OF INFUSION SINCE DOSE INCREASE: 03

REACTIONS (1)
  - DRUG INEFFECTIVE [None]
